FAERS Safety Report 4826119-9 (Version None)
Quarter: 2005Q4

REPORT INFORMATION
  Report Type: 
  Country: None (occurrence: None)
  Receive Date: 20051109
  Receipt Date: 20051108
  Transmission Date: 20060501
  Serious: Yes (Hospitalization, Other)
  Sender: FDA-Public Use
  Company Number: 005797

PATIENT
  Age: 16 Year
  Sex: Female
  Weight: 117.9 kg

DRUGS (3)
  1. FLUOXETINE [Suspect]
     Indication: DEPRESSION
     Dosage: 20 MG, QD, ORAL
     Route: 048
     Dates: start: 20050615, end: 20051006
  2. PROTONIX [Concomitant]
  3. TOPAMAX [Concomitant]

REACTIONS (8)
  - APHASIA [None]
  - CHEST PAIN [None]
  - FEELING ABNORMAL [None]
  - HEADACHE [None]
  - HEMIPARESIS [None]
  - LOSS OF CONSCIOUSNESS [None]
  - PARAESTHESIA [None]
  - STRESS [None]
